FAERS Safety Report 7379009-4 (Version None)
Quarter: 2011Q1

REPORT INFORMATION
  Report Type: 
  Country: None (occurrence: None)
  Receive Date: 20110324
  Receipt Date: 20110324
  Transmission Date: 20110831
  Serious: Yes (Other)
  Sender: FDA-Public Use
  Company Number: None

PATIENT

DRUGS (1)
  1. SULIDAC 200MG [Suspect]
     Indication: OSTEOARTHRITIS
     Dosage: 200MG BID PO
     Route: 048
     Dates: start: 20100706, end: 20100930

REACTIONS (5)
  - HYPERHIDROSIS [None]
  - BLOOD PRESSURE DECREASED [None]
  - DIZZINESS [None]
  - ABDOMINAL PAIN UPPER [None]
  - NAUSEA [None]
